FAERS Safety Report 21443560 (Version 1)
Quarter: 2022Q4

REPORT INFORMATION
  Report Type: Spontaneous
  Country: US (occurrence: US)
  Receive Date: 20221012
  Receipt Date: 20221012
  Transmission Date: 20230113
  Serious: No
  Sender: FDA-Public Use
  Company Number: US-drreddys-SPO/USA/22/0154882

PATIENT
  Sex: Female

DRUGS (1)
  1. METOPROLOL SUCCINATE [Suspect]
     Active Substance: METOPROLOL SUCCINATE
     Indication: Blood pressure abnormal
     Dates: start: 20220706, end: 202209

REACTIONS (3)
  - Heart rate irregular [Unknown]
  - Drug ineffective [Unknown]
  - Product quality issue [Unknown]
